FAERS Safety Report 8488613-1 (Version None)
Quarter: 2012Q3

REPORT INFORMATION
  Report Type: 
  Country: None (occurrence: None)
  Receive Date: 20120705
  Receipt Date: 20120628
  Transmission Date: 20120928
  Serious: Yes (Hospitalization)
  Sender: FDA-Public Use
  Company Number: PHEH2012US009965

PATIENT
  Sex: Female

DRUGS (21)
  1. FLOMAX [Concomitant]
     Dosage: 1 DF, QD
     Route: 048
  2. TAMSULOSIN HYDROCHLORIDE [Concomitant]
     Dosage: 1 DF, QHS
     Route: 048
     Dates: start: 20111027, end: 20120605
  3. VICODIN [Concomitant]
     Dosage: 300 MG, QID
  4. THYROID TAB [Concomitant]
  5. GABAPENTIN [Concomitant]
     Dosage: 14 DF, 3 CAPS MORNING, 3 AT NOON, 4 IN AFTERNOON AND 4 AT BEDTIME
     Route: 048
     Dates: start: 20120227
  6. LEVOTHYROXINE SODIUM [Concomitant]
     Dosage: 1 DF, QD
     Route: 048
  7. ZOLOFT [Concomitant]
  8. HUNTLEIGH DYNAMIC FLOTATION SYSTEM [Concomitant]
     Dates: start: 20111117
  9. GILENYA [Suspect]
     Indication: RELAPSING-REMITTING MULTIPLE SCLEROSIS
     Dosage: 0.5 MG, QD
     Route: 048
     Dates: start: 20120123
  10. HYDROCODONE BITARTRATE + ACETAMINOPHEN [Concomitant]
     Dosage: 1 DF, EVERY 4 DAYS AS NEEDED
     Route: 048
     Dates: start: 20101229
  11. VENLAFAXINE HYDROCHOLRIDE [Concomitant]
     Dosage: 1 DF, QD
     Route: 048
  12. TOPAMAX [Concomitant]
     Dosage: 1 DF, BID
     Route: 048
     Dates: start: 20101022
  13. VITAMIN B-12 [Concomitant]
  14. TYSABRI [Concomitant]
     Dosage: 300 MG/15 ML INFUSION EVERY MONTH
  15. CYCLOBENZAPRINE HCL [Concomitant]
     Dosage: 10 MG, TID
     Route: 048
     Dates: start: 20111027
  16. DIAZEPAM [Concomitant]
     Dosage: 0.5 DF, BID
     Route: 048
  17. ASCORBIC ACID [Concomitant]
  18. VITAMIN D [Concomitant]
  19. NARUTIN N [Concomitant]
  20. ADDERALL XR 10 [Concomitant]
     Dosage: 2 DF, DAILY
     Route: 048
  21. LAXATIVES [Concomitant]
     Route: 048

REACTIONS (21)
  - AMNESIA [None]
  - SEXUAL DYSFUNCTION [None]
  - LYMPHADENOPATHY [None]
  - URINARY INCONTINENCE [None]
  - HYPERAESTHESIA [None]
  - URINARY RETENTION [None]
  - GAIT DISTURBANCE [None]
  - FLATULENCE [None]
  - DEPRESSION [None]
  - ABDOMINAL DISTENSION [None]
  - PERIPHERAL COLDNESS [None]
  - HALLUCINATION [None]
  - VISION BLURRED [None]
  - DECREASED APPETITE [None]
  - GENERALISED OEDEMA [None]
  - PAIN IN EXTREMITY [None]
  - PARAESTHESIA [None]
  - OEDEMA PERIPHERAL [None]
  - ABDOMINAL PAIN [None]
  - BLOOD PRESSURE DECREASED [None]
  - WEIGHT INCREASED [None]
